FAERS Safety Report 20001165 (Version 1)
Quarter: 2021Q4

REPORT INFORMATION
  Report Type: Report from Study
  Country: US (occurrence: US)
  Receive Date: 20211027
  Receipt Date: 20211027
  Transmission Date: 20220304
  Serious: No
  Sender: FDA-Public Use
  Company Number: US-NOVARTISTESTPH-NVSC2021US243481

PATIENT
  Sex: Female

DRUGS (2)
  1. TAFINLAR [Suspect]
     Active Substance: DABRAFENIB MESYLATE
     Indication: Lung neoplasm malignant
     Dosage: 150 MG, BID
     Route: 048
     Dates: start: 20211009
  2. MEKINIST [Suspect]
     Active Substance: TRAMETINIB DIMETHYL SULFOXIDE
     Indication: Lung neoplasm malignant
     Dosage: 2 MG (ONCE DAILY)
     Route: 048
     Dates: start: 20211009

REACTIONS (6)
  - Cystitis [Unknown]
  - Hunger [Recovering/Resolving]
  - Hyperphagia [Unknown]
  - Decreased appetite [Unknown]
  - Nausea [Unknown]
  - Headache [Unknown]
